FAERS Safety Report 17907419 (Version 1)
Quarter: 2020Q2

REPORT INFORMATION
  Report Type: Spontaneous
  Country: US (occurrence: US)
  Receive Date: 20200617
  Receipt Date: 20200617
  Transmission Date: 20200714
  Serious: No
  Sender: FDA-Public Use
  Company Number: None

PATIENT
  Age: 69 Year
  Sex: Female
  Weight: 46.35 kg

DRUGS (5)
  1. GABAPENTIN 100MG [Concomitant]
     Active Substance: GABAPENTIN
  2. ACYCLOVIR 400MG [Concomitant]
     Active Substance: ACYCLOVIR
  3. NINLARO [Suspect]
     Active Substance: IXAZOMIB CITRATE
     Indication: PLASMA CELL MYELOMA
     Dosage: ?          OTHER FREQUENCY:WEEKLY;?
     Route: 048
     Dates: start: 20200107
  4. CELEXA [Concomitant]
     Active Substance: CITALOPRAM HYDROBROMIDE
  5. ONDANSETRON 4MG [Concomitant]
     Active Substance: ONDANSETRON

REACTIONS (1)
  - Headache [None]

NARRATIVE: CASE EVENT DATE: 20200617
